FAERS Safety Report 5356501-5 (Version None)
Quarter: 2007Q2

REPORT INFORMATION
  Report Type: 
  Country: None (occurrence: None)
  Receive Date: 20070530
  Receipt Date: 20070116
  Transmission Date: 20071010
  Serious: Yes (Hospitalization, Other)
  Sender: FDA-Public Use
  Company Number: US200609003736

PATIENT
  Age: 42 Year
  Sex: Male
  Weight: 117.9 kg

DRUGS (2)
  1. ZYPREXA [Suspect]
     Dosage: 30 MG
     Dates: start: 20011020
  2. SERTRALINE [Concomitant]

REACTIONS (12)
  - ANXIETY [None]
  - DEPRESSION [None]
  - DIABETES MELLITUS [None]
  - DIZZINESS [None]
  - EMOTIONAL DISTRESS [None]
  - FATIGUE [None]
  - HYPERSOMNIA [None]
  - POLYDIPSIA [None]
  - POLYURIA [None]
  - PRESCRIBED OVERDOSE [None]
  - SYNCOPE [None]
  - VISION BLURRED [None]
